FAERS Safety Report 7226827-9 (Version None)
Quarter: 2011Q1

REPORT INFORMATION
  Report Type: 
  Country: None (occurrence: None)
  Receive Date: 20110105
  Receipt Date: 20101229
  Transmission Date: 20110831
  Serious: Yes (Hospitalization, Other)
  Sender: FDA-Public Use
  Company Number: 2010SP025277

PATIENT
  Age: 22 Year
  Sex: Female
  Weight: 53.978 kg

DRUGS (2)
  1. NUVARING [Suspect]
     Indication: DYSMENORRHOEA
     Dates: start: 20040216, end: 20080709
  2. NUVARING [Suspect]
     Indication: CONTRACEPTION
     Dates: start: 20040216, end: 20080709

REACTIONS (15)
  - OVARIAN CYST [None]
  - COAGULOPATHY [None]
  - INCORRECT DRUG ADMINISTRATION DURATION [None]
  - ABDOMINAL PAIN [None]
  - PULMONARY EMBOLISM [None]
  - ESCHERICHIA SEPSIS [None]
  - MENORRHAGIA [None]
  - ACNE [None]
  - DEEP VEIN THROMBOSIS [None]
  - FACTOR V LEIDEN MUTATION [None]
  - MULTIPLE INJURIES [None]
  - ATTENTION DEFICIT/HYPERACTIVITY DISORDER [None]
  - PYELONEPHRITIS ACUTE [None]
  - URINARY TRACT INFECTION [None]
  - COCCIDIOIDOMYCOSIS [None]
